FAERS Safety Report 12571617 (Version 1)
Quarter: 2016Q3

REPORT INFORMATION
  Report Type: Other
  Country: GB (occurrence: GB)
  Receive Date: 20160719
  Receipt Date: 20160719
  Transmission Date: 20161109
  Serious: Yes (Other)
  Sender: FDA-Public Use
  Company Number: GB-HQ SPECIALTY-GB-2016INT000551

PATIENT
  Age: 56 Year
  Sex: Male

DRUGS (3)
  1. SIMPONI [Suspect]
     Active Substance: GOLIMUMAB
     Dosage: UNK
     Route: 058
     Dates: start: 20160417
  2. SIMPONI [Suspect]
     Active Substance: GOLIMUMAB
     Indication: PRODUCT USED FOR UNKNOWN INDICATION
     Dosage: UNK
     Route: 058
  3. METHOTREXATE SODIUM. [Suspect]
     Active Substance: METHOTREXATE SODIUM
     Indication: PRODUCT USED FOR UNKNOWN INDICATION
     Dosage: UNK

REACTIONS (7)
  - Hypertension [Unknown]
  - Lethargy [Unknown]
  - Headache [Unknown]
  - Oral candidiasis [Not Recovered/Not Resolved]
  - Lower respiratory tract infection [Unknown]
  - Fatigue [Unknown]
  - Intervertebral disc disorder [Unknown]

NARRATIVE: CASE EVENT DATE: 201601
